FAERS Safety Report 11039606 (Version 2)
Quarter: 2015Q2

REPORT INFORMATION
  Report Type: Spontaneous
  Country: US (occurrence: US)
  Receive Date: 20150416
  Receipt Date: 20150525
  Transmission Date: 20150821
  Serious: Yes (Other)
  Sender: FDA-Public Use
  Company Number: US-JNJFOC-20130409900

PATIENT
  Age: 39 Year
  Sex: Female
  Weight: 75.75 kg

DRUGS (4)
  1. XARELTO [Suspect]
     Active Substance: RIVAROXABAN
     Indication: PULMONARY EMBOLISM
     Route: 048
  2. XARELTO [Suspect]
     Active Substance: RIVAROXABAN
     Indication: PULMONARY EMBOLISM
     Dosage: STRENGTH: 20 MG
     Route: 048
     Dates: start: 20130316, end: 20130413
  3. XARELTO [Suspect]
     Active Substance: RIVAROXABAN
     Indication: DEEP VEIN THROMBOSIS
     Dosage: STRENGTH: 20 MG
     Route: 048
     Dates: start: 20130316, end: 20130413
  4. XARELTO [Suspect]
     Active Substance: RIVAROXABAN
     Indication: DEEP VEIN THROMBOSIS
     Route: 048

REACTIONS (1)
  - Menorrhagia [Recovered/Resolved]

NARRATIVE: CASE EVENT DATE: 20130410
